FAERS Safety Report 18745678 (Version 2)
Quarter: 2021Q1

REPORT INFORMATION
  Report Type: Report from Study
  Country: CA (occurrence: CA)
  Receive Date: 20210115
  Receipt Date: 20210120
  Transmission Date: 20210419
  Serious: Yes (Other)
  Sender: FDA-Public Use
  Company Number: CA-ASTRAZENECA-2021A004635

PATIENT
  Sex: Female

DRUGS (11)
  1. NITRO SPRAY [Concomitant]
     Active Substance: NITROGLYCERIN
  2. BIOTINE [Concomitant]
  3. FASENRA [Suspect]
     Active Substance: BENRALIZUMAB
     Indication: ASTHMA
     Dosage: 30.0MG UNKNOWN
     Route: 058
     Dates: start: 20190917
  4. DILTIAZEM. [Concomitant]
     Active Substance: DILTIAZEM
  5. ALVESCO [Concomitant]
     Active Substance: CICLESONIDE
  6. JUBLIA [Concomitant]
     Active Substance: EFINACONAZOLE
  7. VENTOLIN [Concomitant]
     Active Substance: ALBUTEROL SULFATE
  8. RANITIDINE. [Concomitant]
     Active Substance: RANITIDINE
  9. PANTOPRAZOLE [Concomitant]
     Active Substance: PANTOPRAZOLE
  10. XOLAIR [Concomitant]
     Active Substance: OMALIZUMAB
  11. SYMBICORT [Concomitant]
     Active Substance: BUDESONIDE\FORMOTEROL FUMARATE DIHYDRATE

REACTIONS (2)
  - Asthma [Recovering/Resolving]
  - Drug ineffective [Unknown]
